FAERS Safety Report 9241014 (Version 1)
Quarter: 2013Q2

REPORT INFORMATION
  Report Type: Spontaneous
  Country: US (occurrence: US)
  Receive Date: 20130419
  Receipt Date: 20130419
  Transmission Date: 20140414
  Serious: Yes (Hospitalization)
  Sender: FDA-Public Use
  Company Number: US-B.I. PHARMACEUTICALS,INC./RIDGEFIELD-2013-BI-09896BP

PATIENT
  Age: 53 Year
  Sex: Female

DRUGS (6)
  1. PRADAXA [Suspect]
     Indication: ATRIAL FIBRILLATION
     Dosage: 300 MG
     Route: 048
     Dates: start: 20120526, end: 20120527
  2. PRADAXA [Suspect]
     Dosage: 300 MG
     Route: 048
     Dates: start: 201207
  3. METOPROLOL [Concomitant]
     Indication: ATRIAL FIBRILLATION
     Dosage: 200 MG
     Route: 048
  4. CAPTOPRIL [Concomitant]
     Dosage: 12 MG
     Route: 048
  5. METFORMIN [Concomitant]
     Indication: DIABETES MELLITUS
     Dosage: 1000 MG
     Route: 048
  6. VICTOZA [Concomitant]
     Indication: DIABETES MELLITUS
     Dosage: 1.2 MG
     Route: 058

REACTIONS (5)
  - Nephrolithiasis [Recovered/Resolved]
  - Haematuria [Recovered/Resolved]
  - Fibromyalgia [Not Recovered/Not Resolved]
  - Weight increased [Recovered/Resolved]
  - Atrial fibrillation [Not Recovered/Not Resolved]
